FAERS Safety Report 8162095-1 (Version None)
Quarter: 2012Q1

REPORT INFORMATION
  Report Type: 
  Country: None (occurrence: None)
  Receive Date: 20120224
  Receipt Date: 20120210
  Transmission Date: 20120608
  Serious: Yes (Other)
  Sender: FDA-Public Use
  Company Number: TW-RANBAXY-2012RR-52854

PATIENT
  Age: 62 Year
  Sex: Female

DRUGS (6)
  1. RISPERIDONE [Suspect]
     Indication: MANIA
  2. VALPROIC ACID [Concomitant]
     Indication: SCHIZOPHRENIA
  3. RISPERIDONE [Suspect]
     Indication: SCHIZOPHRENIA
     Dosage: 2 MG/DAY
     Route: 065
     Dates: start: 20040101
  4. PALIPERIDONE [Suspect]
     Indication: SCHIZOPHRENIA
     Dosage: 3 MG/DAY
     Route: 065
  5. VALPROIC ACID [Concomitant]
     Indication: MANIA
     Dosage: UNK
     Route: 065
  6. RISPERIDONE [Concomitant]
     Route: 065

REACTIONS (2)
  - MANIA [None]
  - DRUG WITHDRAWAL SYNDROME [None]
